FAERS Safety Report 9349190 (Version 1)
Quarter: 2013Q2

REPORT INFORMATION
  Report Type: Report from Study
  Country: CA (occurrence: CA)
  Receive Date: 20130614
  Receipt Date: 20130614
  Transmission Date: 20140414
  Serious: Yes (Other)
  Sender: FDA-Public Use
  Company Number: CA-JNJFOC-20130605920

PATIENT
  Sex: Female
  Weight: 99.79 kg

DRUGS (5)
  1. REMICADE [Suspect]
     Indication: COLITIS ULCERATIVE
     Route: 042
  2. PROZAC [Suspect]
     Indication: DEPRESSION
     Route: 065
     Dates: start: 201302
  3. ESTRACE [Suspect]
     Indication: PRODUCT USED FOR UNKNOWN INDICATION
     Route: 065
     Dates: start: 2013
  4. CRINONE [Suspect]
     Indication: PRODUCT USED FOR UNKNOWN INDICATION
     Route: 065
     Dates: start: 2013
  5. PREGVIT [Concomitant]
     Route: 065

REACTIONS (2)
  - Depression [Unknown]
  - Exposure during pregnancy [Unknown]
